FAERS Safety Report 9913123 (Version 3)
Quarter: 2015Q4

REPORT INFORMATION
  Report Type: Report from Study
  Country: US (occurrence: US)
  Receive Date: 20140220
  Receipt Date: 20151110
  Transmission Date: 20160305
  Serious: Yes (Other)
  Sender: FDA-Public Use
  Company Number: US-ROCHE-1288909

PATIENT
  Sex: Male

DRUGS (15)
  1. AVASTIN [Suspect]
     Active Substance: BEVACIZUMAB
     Indication: RETINAL VEIN OCCLUSION
     Dosage: MOST RECENT DOSE ON 22/FEB/2013
     Route: 050
     Dates: start: 20110511
  2. BETADINE [Concomitant]
     Active Substance: POVIDONE-IODINE
     Route: 061
  3. LUCENTIS [Suspect]
     Active Substance: RANIBIZUMAB
     Indication: RETINAL VEIN OCCLUSION
     Dosage: MOST RECENT DOSE ON 04/SEP/2013
     Route: 050
     Dates: start: 20130329
  4. LUCENTIS [Suspect]
     Active Substance: RANIBIZUMAB
     Indication: CYSTOID MACULAR OEDEMA
  5. AVASTIN [Suspect]
     Active Substance: BEVACIZUMAB
     Indication: CYSTOID MACULAR OEDEMA
  6. LIDOCAINE. [Concomitant]
     Active Substance: LIDOCAINE
     Route: 057
  7. LUCENTIS [Suspect]
     Active Substance: RANIBIZUMAB
     Indication: DIABETIC RETINOPATHY
  8. LASIX [Concomitant]
     Active Substance: FUROSEMIDE
     Route: 065
  9. OZURDEX [Concomitant]
     Active Substance: DEXAMETHASONE
     Route: 065
  10. ATENOLOL. [Concomitant]
     Active Substance: ATENOLOL
     Route: 065
  11. LUCENTIS [Suspect]
     Active Substance: RANIBIZUMAB
     Indication: DIABETIC RETINAL OEDEMA
  12. MYDRIACYL [Concomitant]
     Active Substance: TROPICAMIDE
     Route: 065
  13. AVASTIN [Suspect]
     Active Substance: BEVACIZUMAB
     Indication: DIABETIC RETINAL OEDEMA
  14. METFORMIN HYDROCHLORIDE. [Concomitant]
     Active Substance: METFORMIN HYDROCHLORIDE
     Route: 065
  15. BENICAR [Concomitant]
     Active Substance: OLMESARTAN MEDOXOMIL
     Route: 065

REACTIONS (6)
  - Retinal aneurysm [Unknown]
  - Cataract nuclear [Recovering/Resolving]
  - Eye irritation [Unknown]
  - Cataract cortical [Unknown]
  - Visual impairment [Unknown]
  - Vision blurred [Unknown]
